FAERS Safety Report 19738451 (Version 1)
Quarter: 2021Q3

REPORT INFORMATION
  Report Type: Spontaneous
  Country: CN (occurrence: CN)
  Receive Date: 20210824
  Receipt Date: 20210824
  Transmission Date: 20211014
  Serious: Yes (Hospitalization)
  Sender: FDA-Public Use
  Company Number: CN-BAXTER-2021BAX026190

PATIENT
  Age: 13 Year
  Sex: Male
  Weight: 27 kg

DRUGS (8)
  1. 5% GLUCOSE AND 0.9% SODIUM CHLORIDE INJECTION [Suspect]
     Active Substance: DEXTROSE\SODIUM CHLORIDE
     Indication: MEDICATION DILUTION
     Dosage: CYCLOPHOSPHAMIDE FOR INJECTION 0.85G + GLUCOSE AND SODIUM CHLORIDE (4:1) 250ML
     Route: 041
     Dates: start: 20210705, end: 20210709
  2. 5% GLUCOSE AND 0.9% SODIUM CHLORIDE INJECTION [Suspect]
     Active Substance: DEXTROSE\SODIUM CHLORIDE
     Dosage: METHOTREXATE INJECTION 2.64G + GLUCOSE AND SODIUM CHLORIDE (4:1) 2100ML
     Route: 041
     Dates: start: 20210705, end: 20210705
  3. CYTARABINE. [Suspect]
     Active Substance: CYTARABINE
     Indication: ANAPLASTIC LARGE-CELL LYMPHOMA
     Dosage: COURSE A, CYTARABINE FOR INJECTION 0.16 G + GLUCOSE AND SODIUM CHLORIDE (4:1) 100 ML
     Route: 041
     Dates: start: 20210708, end: 20210709
  4. METHOTREXATE. [Suspect]
     Active Substance: METHOTREXATE
     Indication: ANAPLASTIC LARGE-CELL LYMPHOMA
     Dosage: COURSE A, METHOTREXATE INJECTION 2.64G + GLUCOSE AND SODIUM CHLORIDE (4:1) 2100ML
     Route: 041
     Dates: start: 20210705, end: 20210705
  5. ENDOXAN [Suspect]
     Active Substance: CYCLOPHOSPHAMIDE
     Indication: ANAPLASTIC LARGE-CELL LYMPHOMA
     Dosage: COURSE A, CYCLOPHOSPHAMIDE FOR INJECTION 0.85G + GLUCOSE AND SODIUM CHLORIDE (4:1) 250ML
     Route: 041
     Dates: start: 20210705, end: 20210709
  6. 5% GLUCOSE AND 0.9% SODIUM CHLORIDE INJECTION [Suspect]
     Active Substance: DEXTROSE\SODIUM CHLORIDE
     Dosage: CYTARABINE FOR INJECTION 0.16 G + GLUCOSE AND SODIUM CHLORIDE (4:1) 100 ML
     Route: 041
     Dates: start: 20210708, end: 20210709
  7. 5% GLUCOSE AND 0.9% SODIUM CHLORIDE INJECTION [Suspect]
     Active Substance: DEXTROSE\SODIUM CHLORIDE
     Dosage: ETOPOSIDE 0.1 G + GLUCOSE AND SODIUM CHLORIDE (4:1) 250 ML
     Route: 041
     Dates: start: 20210708, end: 20210709
  8. ETOPOSIDE. [Suspect]
     Active Substance: ETOPOSIDE
     Indication: ANAPLASTIC LARGE-CELL LYMPHOMA
     Dosage: COURSE A, ETOPOSIDE 0.1 G + GLUCOSE AND SODIUM CHLORIDE (4:1) 250 ML
     Route: 041
     Dates: start: 20210708, end: 20210709

REACTIONS (1)
  - Myelosuppression [Recovering/Resolving]

NARRATIVE: CASE EVENT DATE: 20210716
